FAERS Safety Report 5330714-0 (Version None)
Quarter: 2007Q2

REPORT INFORMATION
  Report Type: 
  Country: None (occurrence: None)
  Receive Date: 20070522
  Receipt Date: 20070515
  Transmission Date: 20071010
  Serious: Yes (Death)
  Sender: FDA-Public Use
  Company Number: PHEH2007US07204

PATIENT
  Age: 62 Year
  Sex: Female

DRUGS (1)
  1. FORADIL [Suspect]
     Indication: BRONCHITIS CHRONIC
     Dosage: UNK, BID
     Dates: start: 20060420, end: 20070430

REACTIONS (1)
  - LUNG NEOPLASM MALIGNANT [None]
